FAERS Safety Report 5962332-5 (Version None)
Quarter: 2008Q4

REPORT INFORMATION
  Report Type: 
  Country: None (occurrence: None)
  Receive Date: 20081121
  Receipt Date: 20081118
  Transmission Date: 20090506
  Serious: Yes (Other)
  Sender: FDA-Public Use
  Company Number: CA-AMGEN-US307212

PATIENT
  Sex: Female
  Weight: 55 kg

DRUGS (12)
  1. SENSIPAR [Suspect]
     Indication: DRUG USE FOR UNKNOWN INDICATION
     Route: 048
     Dates: start: 20080814, end: 20080822
  2. RAMIPRIL [Concomitant]
     Route: 048
  3. DIGOXIN [Concomitant]
     Route: 048
  4. SEVELAMER [Concomitant]
     Route: 048
  5. SEVELAMER [Concomitant]
     Route: 048
  6. METOPROLOL [Concomitant]
     Route: 048
  7. MULTI-VITAMINS [Concomitant]
     Route: 048
  8. CALCITRIOL [Concomitant]
     Route: 048
  9. QUININE SULFATE [Concomitant]
     Route: 048
  10. PRAVASTATIN [Concomitant]
     Route: 048
  11. DILTIAZEM HCL [Concomitant]
     Route: 048
  12. WARFARIN SODIUM [Concomitant]
     Route: 065

REACTIONS (6)
  - DYSPNOEA [None]
  - MYALGIA [None]
  - NAUSEA [None]
  - OEDEMA PERIPHERAL [None]
  - PALLOR [None]
  - PERIPHERAL COLDNESS [None]
